FAERS Safety Report 15066648 (Version 1)
Quarter: 2018Q2

REPORT INFORMATION
  Report Type: Spontaneous
  Country: US (occurrence: US)
  Receive Date: 20180626
  Receipt Date: 20180626
  Transmission Date: 20180711
  Serious: Yes (Hospitalization)
  Sender: FDA-Public Use
  Company Number: US-UNITED THERAPEUTICS-UNT-2018-009163

PATIENT
  Sex: Female

DRUGS (2)
  1. REMODULIN [Suspect]
     Active Substance: TREPROSTINIL
     Indication: PULMONARY ARTERIAL HYPERTENSION
     Dosage: 0.025 ?G/KG, CONTINUING
     Route: 058
     Dates: start: 20150220
  2. REMODULIN [Suspect]
     Active Substance: TREPROSTINIL
     Dosage: 0.0236 ?G/KG, CONTINUING, 0.032 ML/HR
     Route: 058

REACTIONS (1)
  - Infusion site cellulitis [Recovered/Resolved]

NARRATIVE: CASE EVENT DATE: 20180616
